FAERS Safety Report 5941259-9 (Version None)
Quarter: 2008Q4

REPORT INFORMATION
  Report Type: 
  Country: None (occurrence: None)
  Receive Date: 20081103
  Receipt Date: 20081103
  Transmission Date: 20090506
  Serious: No
  Sender: FDA-Public Use
  Company Number: None

PATIENT
  Sex: Male
  Weight: 70.3075 kg

DRUGS (1)
  1. LEVAQUIN 500MG ORTHO PLAN [Suspect]
     Indication: PROSTATE INFECTION
     Dosage: 500MG 1 PER DAY PO
     Route: 048
     Dates: start: 20080820, end: 20080911

REACTIONS (2)
  - ARTHRALGIA [None]
  - TENDON PAIN [None]
